FAERS Safety Report 8321147-3 (Version None)
Quarter: 2012Q2

REPORT INFORMATION
  Report Type: 
  Country: None (occurrence: None)
  Receive Date: 20120430
  Receipt Date: 20120423
  Transmission Date: 20120825
  Serious: Yes (Hospitalization)
  Sender: FDA-Public Use
  Company Number: US-BAYER-2012-018559

PATIENT
  Age: 41 Year
  Sex: Female
  Weight: 128 kg

DRUGS (10)
  1. YASMIN [Suspect]
     Dosage: UNK
  2. POTASSIUM CHLORIDE [Concomitant]
     Route: 048
  3. TOPAMAX [Concomitant]
     Dosage: DAILY DOSE 100 MG
  4. LISINOPRIL [Concomitant]
     Dosage: DAILY DOSE 5 MG
  5. AVANDIA [Concomitant]
     Dosage: 04 MG, UNK
     Route: 048
  6. IRON DEXTRAN [Concomitant]
  7. FUROSEMIDE [Concomitant]
     Route: 048
  8. COLACE [Concomitant]
  9. CLOTRIMAZOLE AND BETAMETHASONE DIPROPIONATE [Concomitant]
     Dosage: 45 G, UNK
     Route: 061
  10. IBUPROFEN [Concomitant]
     Dosage: 800 MG, UNK

REACTIONS (2)
  - PULMONARY EMBOLISM [None]
  - DEEP VEIN THROMBOSIS [None]
